FAERS Safety Report 19066392 (Version 1)
Quarter: 2021Q1

REPORT INFORMATION
  Report Type: Report from Study
  Country: IT (occurrence: IT)
  Receive Date: 20210328
  Receipt Date: 20210328
  Transmission Date: 20210420
  Serious: Yes (Other)
  Sender: FDA-Public Use
  Company Number: IT-TEVA-2021-IT-1893700

PATIENT
  Age: 75 Year
  Sex: Female

DRUGS (2)
  1. APIXABAN [Interacting]
     Active Substance: APIXABAN
     Indication: ATRIAL FIBRILLATION
     Dosage: 10 MILLIGRAM DAILY;
     Route: 048
  2. VALPROIC ACID. [Suspect]
     Active Substance: VALPROIC ACID
     Indication: EPILEPSY
     Route: 065

REACTIONS (3)
  - Contraindicated product prescribed [Unknown]
  - Transient ischaemic attack [Unknown]
  - Drug interaction [Unknown]
